FAERS Safety Report 16569275 (Version 1)
Quarter: 2019Q3

REPORT INFORMATION
  Report Type: Spontaneous
  Country: FR (occurrence: FR)
  Receive Date: 20190714
  Receipt Date: 20190714
  Transmission Date: 20191004
  Serious: Yes (Death, Hospitalization, Other)
  Sender: FDA-Public Use
  Company Number: FR-BRISTOL-MYERS SQUIBB COMPANY-BMS-2019-067598

PATIENT
  Age: 86 Year
  Sex: Male
  Weight: 77 kg

DRUGS (1)
  1. OPDIVO [Suspect]
     Active Substance: NIVOLUMAB
     Indication: MALIGNANT MELANOMA
     Dosage: 234 MILLIGRAM, (TOUS LES 14 JOURS PUIS 480 MG TOUS LES 28 JOURS)
     Route: 042
     Dates: start: 20171211

REACTIONS (2)
  - Respiratory distress [Fatal]
  - Dyspnoea [Fatal]

NARRATIVE: CASE EVENT DATE: 201810
